FAERS Safety Report 13191713 (Version 1)
Quarter: 2017Q1

REPORT INFORMATION
  Report Type: Spontaneous
  Country: US (occurrence: US)
  Receive Date: 20170206
  Receipt Date: 20170206
  Transmission Date: 20170428
  Serious: Yes (Hospitalization, Disabling, Other)
  Sender: FDA-Public Use
  Company Number: None

PATIENT
  Age: 49 Year
  Sex: Male
  Weight: 56.25 kg

DRUGS (1)
  1. LACRISERT [Suspect]
     Active Substance: HYDROXYPROPYL CELLULOSE
     Indication: DRY EYE
     Dosage: ?          QUANTITY:1 5 MG;?
     Route: 047
     Dates: start: 201607, end: 20160813

REACTIONS (4)
  - Eye pain [None]
  - Blindness [None]
  - Rash pustular [None]
  - Eyelid oedema [None]

NARRATIVE: CASE EVENT DATE: 20160702
